FAERS Safety Report 24582128 (Version 1)
Quarter: 2024Q4

REPORT INFORMATION
  Report Type: Report from Study
  Country: US (occurrence: US)
  Receive Date: 20241105
  Receipt Date: 20241105
  Transmission Date: 20250114
  Serious: Yes (Death, Hospitalization, Other)
  Sender: ABBVIE
  Company Number: US-ABBVIE-5986362

PATIENT
  Age: 62 Year
  Sex: Male

DRUGS (1)
  1. HUMIRA [Suspect]
     Active Substance: ADALIMUMAB
     Indication: Product used for unknown indication
     Dosage: CITRATE FREE
     Route: 058
     Dates: start: 20220601

REACTIONS (12)
  - Cardiac arrest [Fatal]
  - Asthma [Unknown]
  - Pneumonia [Unknown]
  - Rehabilitation therapy [Unknown]
  - Arthritis [Unknown]
  - Hip arthroplasty [Unknown]
  - Eye disorder [Unknown]
  - Migraine [Unknown]
  - Swelling face [Unknown]
  - Gait disturbance [Unknown]
  - Peripheral swelling [Unknown]
  - Abdominal distension [Unknown]

NARRATIVE: CASE EVENT DATE: 20241008
